FAERS Safety Report 12469586 (Version 1)
Quarter: 2016Q2

REPORT INFORMATION
  Report Type: Spontaneous
  Country: US (occurrence: US)
  Receive Date: 20160615
  Receipt Date: 20160615
  Transmission Date: 20160815
  Serious: Yes (Other)
  Sender: FDA-Public Use
  Company Number: US-CELGENEUS-USA-2016061659

PATIENT
  Sex: Female

DRUGS (2)
  1. BEVACIZUMAB [Concomitant]
     Active Substance: BEVACIZUMAB
     Indication: CERVIX CARCINOMA
     Route: 065
  2. ABRAXANE [Suspect]
     Active Substance: PACLITAXEL
     Indication: CERVIX CARCINOMA
     Dosage: 60MG/M2-100MG/M2
     Route: 041

REACTIONS (17)
  - Fatigue [Unknown]
  - Urogenital fistula [Unknown]
  - Neuropathy peripheral [Unknown]
  - Constipation [Unknown]
  - Anaemia [Unknown]
  - Thrombocytopenia [Unknown]
  - Leukopenia [Unknown]
  - Weight decreased [Unknown]
  - Epistaxis [Unknown]
  - Pleural effusion [Unknown]
  - Small intestinal obstruction [Unknown]
  - Insomnia [Unknown]
  - Nausea [Unknown]
  - Atrial fibrillation [Unknown]
  - Diarrhoea [Unknown]
  - Vomiting [Unknown]
  - Hypertension [Unknown]
